FAERS Safety Report 23588703 (Version 4)
Quarter: 2024Q2

REPORT INFORMATION
  Report Type: Report from Study
  Country: AU (occurrence: AU)
  Receive Date: 20240302
  Receipt Date: 20240504
  Transmission Date: 20240716
  Serious: Yes (Other)
  Sender: FDA-Public Use
  Company Number: AU-002147023-NVSC2024AU041360

PATIENT
  Age: 69 Year
  Sex: Female

DRUGS (8)
  1. LEQVIO [Suspect]
     Active Substance: INCLISIRAN SODIUM
     Indication: Cardiovascular disorder
     Dosage: 10 MG
     Route: 058
  2. LEQVIO [Suspect]
     Active Substance: INCLISIRAN SODIUM
     Dosage: 284MG/ML, EVERY 6 MONTHS
     Route: 058
     Dates: start: 20230213, end: 20230213
  3. LEQVIO [Suspect]
     Active Substance: INCLISIRAN SODIUM
     Dosage: 284MG/ML, EVERY 6 MONTHS
     Route: 058
  4. THYROXINE [Concomitant]
     Active Substance: LEVOTHYROXINE
     Indication: Autoimmune thyroiditis
     Dosage: 50MCG, QD
     Route: 048
  5. LEVEMIR [Concomitant]
     Active Substance: INSULIN DETEMIR
     Indication: Type 1 diabetes mellitus
     Dosage: VANABLE, QD
     Route: 058
  6. FUROSEMIDE [Concomitant]
     Active Substance: FUROSEMIDE
     Indication: Renal failure
     Dosage: 20 MG, QD
     Route: 048
  7. PANTOPRAZOLE [Concomitant]
     Active Substance: PANTOPRAZOLE
     Indication: Gastrooesophageal reflux disease
     Dosage: 20 MG, PRN
     Route: 048
  8. APIDRA [Concomitant]
     Active Substance: INSULIN GLULISINE
     Indication: Type 1 diabetes mellitus
     Dosage: 4-10 UNITS, TID
     Route: 058

REACTIONS (5)
  - Glomerular filtration rate decreased [Not Recovered/Not Resolved]
  - Malaise [Recovering/Resolving]
  - Decreased appetite [Unknown]
  - Lethargy [Unknown]
  - Product use in unapproved indication [Unknown]

NARRATIVE: CASE EVENT DATE: 20240214
